FAERS Safety Report 10055771 (Version 1)
Quarter: 2014Q2

REPORT INFORMATION
  Report Type: Spontaneous
  Country: US (occurrence: None)
  Receive Date: 20140402
  Receipt Date: 20140402
  Transmission Date: 20141212
  Serious: Yes (Other)
  Sender: FDA-Public Use
  Company Number: None

PATIENT
  Age: 54 Year
  Sex: Male
  Weight: 86 kg

DRUGS (16)
  1. VANCOMYCIN [Suspect]
     Dates: start: 20140322, end: 20140324
  2. ZOSYN [Suspect]
     Dates: start: 20140322, end: 20140326
  3. AMLODIPINE [Concomitant]
  4. LIPITOR [Concomitant]
  5. ASCORBIC ACID [Concomitant]
  6. DIGOXIN [Concomitant]
  7. HYDRALAZINE [Concomitant]
  8. INSULIN LISPRO [Concomitant]
  9. METOPROLOL TARTRATE [Concomitant]
  10. MIRTAZAPINE [Concomitant]
  11. ONDANSETRON [Concomitant]
  12. PANTOPRAZOLE [Concomitant]
  13. PHYTONADIONE [Concomitant]
  14. KLOR-CON [Concomitant]
  15. WARFARIN [Concomitant]
  16. METRONIDAZOLE [Concomitant]

REACTIONS (2)
  - Renal failure acute [None]
  - Drug interaction [None]
